FAERS Safety Report 9061857 (Version 2)
Quarter: 2013Q1

REPORT INFORMATION
  Report Type: Spontaneous
  Country: US (occurrence: None)
  Receive Date: 20130122
  Receipt Date: 20130215
  Transmission Date: 20140127
  Serious: Yes (Other)
  Sender: FDA-Public Use
  Company Number: ACO_33749_2013

PATIENT
  Sex: Female

DRUGS (10)
  1. AMPYRA (DALFAMPRIDINE) TABLET, 10MG [Suspect]
     Indication: PRODUCT USED FOR UNKNOWN INDICATION
     Route: 048
  2. XANAX (ALPRAZOLAM) [Concomitant]
  3. PAXIL (PAROXETINE HYDROCHLORIDE) [Concomitant]
  4. IRON (FERROUS SULFATE) [Concomitant]
  5. COLACE (DOCUSATE SODIUM) [Concomitant]
  6. PEPCID (FAMOTIDINE) [Concomitant]
  7. TRICOR (FENOFIBRATE) [Concomitant]
  8. NEURONTIN (GABAPENTIN) [Concomitant]
  9. IMODIUM (LOPERAMIDE HYDROCHLORIDE) [Concomitant]
  10. TRILEPTAL (OXCARBAZEPINE) [Concomitant]

REACTIONS (2)
  - Death [None]
  - No adverse event [None]
